FAERS Safety Report 8368334-6 (Version None)
Quarter: 2012Q2

REPORT INFORMATION
  Report Type: 
  Country: None (occurrence: None)
  Receive Date: 20120517
  Receipt Date: 20120508
  Transmission Date: 20120825
  Serious: Yes (Hospitalization)
  Sender: FDA-Public Use
  Company Number: CA-ELI_LILLY_AND_COMPANY-CA201202006269

PATIENT
  Age: 82 Year
  Sex: Female
  Weight: 56.2 kg

DRUGS (7)
  1. TYLENOL                                 /SCH/ [Concomitant]
  2. ELAVIL [Concomitant]
  3. VENLAFAXINE [Concomitant]
  4. SYNTHROID [Concomitant]
  5. NITRAZEPAM [Concomitant]
  6. FORTEO [Suspect]
     Indication: OSTEOPOROSIS
     Dosage: 20 UG, QD
     Route: 058
     Dates: start: 20120104
  7. FORTEO [Suspect]
     Dosage: 20 UG, QD
     Route: 058

REACTIONS (4)
  - ABDOMINAL PAIN [None]
  - CONSTIPATION [None]
  - FALL [None]
  - SPINAL COMPRESSION FRACTURE [None]
